FAERS Safety Report 9401820 (Version 1)
Quarter: 2013Q3

REPORT INFORMATION
  Report Type: Spontaneous
  Country: CN (occurrence: CN)
  Receive Date: 20130716
  Receipt Date: 20130716
  Transmission Date: 20140515
  Serious: Yes (Other)
  Sender: FDA-Public Use
  Company Number: CN-JNJFOC-20130706146

PATIENT
  Sex: 0

DRUGS (4)
  1. DUROGESIC D-TRANS [Suspect]
     Indication: PAIN
     Route: 062
  2. MORPHINE [Suspect]
     Indication: PAIN
     Route: 065
  3. CHAIHUSHUGANSAN [Suspect]
     Indication: HEPATIC CANCER
     Route: 048
  4. PLACEBO [Suspect]
     Indication: PAIN
     Route: 048

REACTIONS (9)
  - Mental disorder [Unknown]
  - Respiratory depression [Unknown]
  - Nausea [Unknown]
  - Constipation [Unknown]
  - Vomiting [Unknown]
  - Dizziness [Unknown]
  - Somnolence [Unknown]
  - Skin reaction [Unknown]
  - Dysuria [Unknown]
